FAERS Safety Report 5489244-8 (Version None)
Quarter: 2007Q4

REPORT INFORMATION
  Report Type: 
  Country: None (occurrence: None)
  Receive Date: 20071018
  Receipt Date: 20071010
  Transmission Date: 20080405
  Serious: Yes (Other)
  Sender: FDA-Public Use
  Company Number: CA-ASTRAZENECA-2007UW20290

PATIENT
  Age: 71 Year
  Sex: Female

DRUGS (14)
  1. NEXIUM [Suspect]
     Indication: PROPHYLAXIS
     Route: 048
     Dates: start: 20060301, end: 20070815
  2. METHOTREXATE [Interacting]
     Indication: RHEUMATOID ARTHRITIS
     Route: 058
     Dates: start: 19990101
  3. METHOTREXATE [Interacting]
     Dosage: INCREASED
     Route: 058
     Dates: start: 20070201, end: 20070716
  4. METHOTREXATE [Interacting]
     Dosage: DECREASED
     Route: 058
     Dates: start: 20070801
  5. PLAQUENIL [Concomitant]
     Route: 048
     Dates: start: 19970101
  6. PREDNISONE [Concomitant]
     Route: 048
     Dates: start: 19970101
  7. PANTOPRAZOLE SODIUM [Concomitant]
     Route: 048
  8. METOPROLOL [Concomitant]
     Route: 048
  9. DILTIAZEM HCL [Concomitant]
     Route: 048
  10. ASPIRIN [Concomitant]
     Route: 048
     Dates: start: 20070101
  11. NITROGLYCERIN [Concomitant]
     Dosage: ON 12 HOURS DAILY
  12. RISEDRONATE SODIUM [Concomitant]
  13. CALCIUM [Concomitant]
  14. VITAMIN D [Concomitant]

REACTIONS (3)
  - ANAEMIA MACROCYTIC [None]
  - DRUG INTERACTION [None]
  - HAEMOGLOBIN DECREASED [None]
